FAERS Safety Report 11561742 (Version 1)
Quarter: 2015Q3

REPORT INFORMATION
  Report Type: Spontaneous
  Country: US (occurrence: US)
  Receive Date: 20150916
  Receipt Date: 20150916
  Transmission Date: 20151125
  Serious: No
  Sender: FDA-Public Use
  Company Number: US-ELI_LILLY_AND_COMPANY-US200811001493

PATIENT
  Age: 84 Year
  Sex: Female

DRUGS (19)
  1. ALBUTEROL. [Concomitant]
     Active Substance: ALBUTEROL
     Route: 055
  2. VITAMIN D [Concomitant]
     Active Substance: CHOLECALCIFEROL
     Dosage: 15000 IU, WEEKLY (1/W)
  3. COMBIVENT [Concomitant]
     Active Substance: ALBUTEROL SULFATE\IPRATROPIUM BROMIDE
     Route: 055
  4. BABY ASPIRIN [Concomitant]
     Active Substance: ASPIRIN
  5. SYNTHROID [Concomitant]
     Active Substance: LEVOTHYROXINE SODIUM
  6. VITAMIN D [Concomitant]
     Active Substance: CHOLECALCIFEROL
     Dosage: UNK, DAILY (1/D)
  7. AZOPT [Concomitant]
     Active Substance: BRINZOLAMIDE
     Route: 047
  8. TOPROL XL [Concomitant]
     Active Substance: METOPROLOL SUCCINATE
  9. BUMEX [Concomitant]
     Active Substance: BUMETANIDE
  10. ATIVAN [Concomitant]
     Active Substance: LORAZEPAM
  11. MIRALAX [Concomitant]
     Active Substance: POLYETHYLENE GLYCOL 3350
  12. COLACE [Concomitant]
     Active Substance: DOCUSATE SODIUM
  13. VICODIN [Concomitant]
     Active Substance: ACETAMINOPHEN\HYDROCODONE BITARTRATE
  14. FLONASE [Concomitant]
     Active Substance: FLUTICASONE PROPIONATE
     Route: 045
  15. MICARDIS [Concomitant]
     Active Substance: TELMISARTAN
  16. POTASSIUM [Concomitant]
     Active Substance: POTASSIUM
  17. FORTEO [Suspect]
     Active Substance: TERIPARATIDE
     Indication: HYPERPARATHYROIDISM
     Dosage: 20 UG, DAILY (1/D)
     Dates: start: 20080918, end: 20080922
  18. ZYRTEC [Concomitant]
     Active Substance: CETIRIZINE HYDROCHLORIDE
  19. PRILOSEC [Concomitant]
     Active Substance: OMEPRAZOLE MAGNESIUM

REACTIONS (14)
  - Pharyngeal oedema [Recovered/Resolved]
  - Dyspnoea [Recovered/Resolved]
  - Pain [Recovered/Resolved]
  - Back pain [Recovered/Resolved]
  - Fall [Recovered/Resolved]
  - Arthralgia [Recovered/Resolved]
  - Pain in extremity [Recovered/Resolved]
  - Mobility decreased [Recovered/Resolved]
  - Chest discomfort [Recovered/Resolved]
  - Asthenia [Recovered/Resolved]
  - Swollen tongue [Recovered/Resolved]
  - Dry throat [Recovered/Resolved]
  - Hypersomnia [Recovered/Resolved]
  - Hypophagia [Recovered/Resolved]

NARRATIVE: CASE EVENT DATE: 200809
